FAERS Safety Report 11251741 (Version 1)
Quarter: 2015Q3

REPORT INFORMATION
  Report Type: Spontaneous
  Country: US (occurrence: US)
  Receive Date: 20150708
  Receipt Date: 20150708
  Transmission Date: 20151125
  Serious: Yes (Other)
  Sender: FDA-Public Use
  Company Number: US-ELI_LILLY_AND_COMPANY-US201203008102

PATIENT
  Sex: Female
  Weight: 82.99 kg

DRUGS (7)
  1. CISPLATIN. [Concomitant]
     Active Substance: CISPLATIN
     Indication: ADENOSQUAMOUS CELL LUNG CANCER
     Dosage: UNK
     Dates: start: 20090410
  2. OXYGEN. [Concomitant]
     Active Substance: OXYGEN
  3. FOLIC ACID. [Concomitant]
     Active Substance: FOLIC ACID
     Dosage: 1 MG, UNK
     Route: 048
     Dates: start: 20090410
  4. ALIMTA [Suspect]
     Active Substance: PEMETREXED DISODIUM
     Dosage: 985 MG, OTHER
     Route: 042
     Dates: end: 201012
  5. VITAMIN B12 [Concomitant]
     Active Substance: CYANOCOBALAMIN
     Dosage: 1000 UG, UNK
     Route: 030
     Dates: start: 20090410
  6. ALIMTA [Suspect]
     Active Substance: PEMETREXED DISODIUM
     Indication: ADENOSQUAMOUS CELL LUNG CANCER
     Dosage: 940 MG, OTHER
     Route: 042
     Dates: start: 20090410
  7. CORTICOSTEROID NOS [Concomitant]
     Active Substance: CORTICOSTEROID NOS
     Dosage: 4 MG, BID
     Route: 048
     Dates: start: 20090410

REACTIONS (1)
  - Renal failure [Unknown]
